FAERS Safety Report 8268063-3 (Version None)
Quarter: 2012Q2

REPORT INFORMATION
  Report Type: 
  Country: None (occurrence: None)
  Receive Date: 20120409
  Receipt Date: 20120404
  Transmission Date: 20120825
  Serious: Yes (Hospitalization, Other)
  Sender: FDA-Public Use
  Company Number: IT-PFIZER INC-2011268271

PATIENT
  Age: 52 Year
  Sex: Male
  Weight: 114 kg

DRUGS (12)
  1. BLINDED THERAPY [Suspect]
     Dosage: UNK
     Route: 065
     Dates: start: 20110616, end: 20110913
  2. LASIX [Concomitant]
     Dosage: UNK
     Dates: start: 20110624
  3. SILDENAFIL CITRATE [Suspect]
     Indication: PULMONARY HYPERTENSION
     Dosage: 60 MG, UNK
     Route: 048
     Dates: start: 20090201
  4. DEURSIL [Concomitant]
     Dosage: UNK
     Dates: start: 20060101
  5. FUROSEMIDE [Concomitant]
     Dosage: UNK
     Dates: start: 20110619, end: 20110623
  6. PERIDON [Concomitant]
     Dosage: UNK
     Dates: start: 20120223, end: 20120223
  7. RIOCIGUAT [Suspect]
     Dosage: 2.5 MG, 3X/DAY
     Dates: start: 20111108
  8. PANTOPRAZOLE SODIUM [Concomitant]
  9. KANRENOL [Concomitant]
     Dosage: UNK
     Dates: start: 20090701
  10. AMPICILLIN SODIUM/SULBACTAM SODIUM [Concomitant]
     Dosage: UNK
     Dates: start: 20110619, end: 20110625
  11. RIOCIGUAT [Suspect]
     Indication: PULMONARY HYPERTENSION
     Dosage: TITRATION
     Route: 048
     Dates: start: 20110913, end: 20111108
  12. AUGMENTIN '125' [Concomitant]
     Dosage: UNK
     Dates: start: 20110712, end: 20110802

REACTIONS (1)
  - ERYSIPELAS [None]
